FAERS Safety Report 9123594 (Version 2)
Quarter: 2013Q2

REPORT INFORMATION
  Report Type: Spontaneous
  Country: GB (occurrence: GB)
  Receive Date: 20130227
  Receipt Date: 20130522
  Transmission Date: 20140414
  Serious: Yes (Death, Other)
  Sender: FDA-Public Use
  Company Number: GB-ROCHE-1195280

PATIENT
  Age: 35 Year
  Sex: Female
  Weight: 91 kg

DRUGS (5)
  1. XOLAIR [Suspect]
     Indication: ASTHMA
     Route: 058
     Dates: start: 20120228
  2. SERETIDE [Concomitant]
  3. MONTELUKAST [Concomitant]
  4. SALBUTAMOL [Concomitant]
  5. PHYLLOCONTIN [Concomitant]

REACTIONS (3)
  - Asthma [Fatal]
  - Cardiac arrest [Unknown]
  - Injection site erythema [Unknown]
